FAERS Safety Report 15820899 (Version 1)
Quarter: 2019Q1

REPORT INFORMATION
  Report Type: Spontaneous
  Country: US (occurrence: US)
  Receive Date: 20190114
  Receipt Date: 20190114
  Transmission Date: 20190417
  Serious: No
  Sender: FDA-Public Use
  Company Number: US-TEVA-2018-US-990812

PATIENT
  Sex: Female

DRUGS (4)
  1. QVAR REDIHALER [Suspect]
     Active Substance: BECLOMETHASONE DIPROPIONATE
     Dosage: ONE PUFF ONCE DAILY, INCREASED TO 1 PUFF TWICE DAILY, THEN TO 1 PUFF THREE TIMES
  2. PROAIR HFA [Suspect]
     Active Substance: ALBUTEROL SULFATE
     Indication: ASTHMA
  3. QVAR REDIHALER [Suspect]
     Active Substance: BECLOMETHASONE DIPROPIONATE
     Dosage: ONE PUFF ONCE DAILY, INCREASED TO 1 PUFF TWICE DAILY, THEN TO 1 PUFF THREE TIMES
  4. QVAR REDIHALER [Suspect]
     Active Substance: BECLOMETHASONE DIPROPIONATE
     Indication: ASTHMA
     Dosage: ONE PUFF ONCE DAILY, INCREASED TO 1 PUFF TWICE DAILY, THEN TO 1 PUFF THREE TIMES
     Dates: start: 20181210

REACTIONS (7)
  - Dry mouth [Unknown]
  - Drug ineffective [Unknown]
  - Wrong technique in product usage process [Unknown]
  - Cough [Unknown]
  - Aphonia [Unknown]
  - Dizziness [Unknown]
  - Device issue [Unknown]
